FAERS Safety Report 7000636-8 (Version None)
Quarter: 2010Q3

REPORT INFORMATION
  Report Type: 
  Country: None (occurrence: None)
  Receive Date: 20100920
  Receipt Date: 20100910
  Transmission Date: 20110219
  Serious: Yes (Hospitalization, Other)
  Sender: FDA-Public Use
  Company Number: US-ASTRAZENECA-2010SE42547

PATIENT
  Age: 67 Year
  Sex: Female
  Weight: 90.7 kg

DRUGS (6)
  1. METOPROLOL UNSPECIFIED [Suspect]
     Indication: MYOCARDIAL INFARCTION
     Route: 048
     Dates: start: 20070526
  2. CRESTOR [Suspect]
     Indication: BLOOD CHOLESTEROL INCREASED
     Route: 048
     Dates: start: 20070526, end: 20100827
  3. PLAVIX [Concomitant]
  4. ASPIRIN [Concomitant]
  5. ENALAPRIL [Concomitant]
  6. FENOFIBRATE [Concomitant]

REACTIONS (11)
  - BLOOD TRIGLYCERIDES INCREASED [None]
  - CHEST PAIN [None]
  - GAIT DISTURBANCE [None]
  - HERPES ZOSTER [None]
  - IMPAIRED WORK ABILITY [None]
  - MUSCULOSKELETAL PAIN [None]
  - MYOCARDIAL INFARCTION [None]
  - NAUSEA [None]
  - RASH PRURITIC [None]
  - STENT PLACEMENT [None]
  - WEIGHT INCREASED [None]
